FAERS Safety Report 24680397 (Version 1)
Quarter: 2024Q4

REPORT INFORMATION
  Report Type: Spontaneous
  Country: US (occurrence: US)
  Receive Date: 20241129
  Receipt Date: 20241129
  Transmission Date: 20250115
  Serious: Yes (Death, Life-Threatening, Other)
  Sender: BRACCO
  Company Number: US-BRACCO-2024US04669

PATIENT
  Age: 67 Year
  Sex: Male

DRUGS (11)
  1. LUMASON [Suspect]
     Active Substance: SULFUR HEXAFLUORIDE
     Indication: Echocardiogram
     Dosage: 14.56 MG
     Route: 042
     Dates: start: 20240730, end: 20240730
  2. LUMASON [Suspect]
     Active Substance: SULFUR HEXAFLUORIDE
     Indication: Echocardiogram
     Dosage: 14.56 MG
     Route: 042
     Dates: start: 20240730, end: 20240730
  3. LUMASON [Suspect]
     Active Substance: SULFUR HEXAFLUORIDE
     Indication: Echocardiogram
     Dosage: 14.56 MG
     Route: 042
     Dates: start: 20240730, end: 20240730
  4. AMIODARONE HYDROCHLORIDE [Concomitant]
     Active Substance: AMIODARONE HYDROCHLORIDE
  5. ASPIRIN [Concomitant]
     Active Substance: ASPIRIN
  6. ATORVASTATIN [Concomitant]
     Active Substance: ATORVASTATIN
  7. BISOPROLOL [Concomitant]
     Active Substance: BISOPROLOL
  8. BUMEX [Concomitant]
     Active Substance: BUMETANIDE
  9. COMBIVENT [Concomitant]
     Active Substance: ALBUTEROL SULFATE\IPRATROPIUM BROMIDE
  10. ELIQUIS [Concomitant]
     Active Substance: APIXABAN
  11. ENTRESTO [Concomitant]
     Active Substance: SACUBITRIL\VALSARTAN

REACTIONS (1)
  - Cardio-respiratory arrest [Fatal]

NARRATIVE: CASE EVENT DATE: 20240730
